FAERS Safety Report 5542097-1 (Version None)
Quarter: 2007Q4

REPORT INFORMATION
  Report Type: 
  Country: None (occurrence: None)
  Receive Date: 20071210
  Receipt Date: 20070221
  Transmission Date: 20080405
  Serious: No
  Sender: FDA-Public Use
  Company Number: US-AMGEN-US212144

PATIENT
  Sex: Female
  Weight: 78.5 kg

DRUGS (4)
  1. ENBREL [Suspect]
     Indication: RHEUMATOID ARTHRITIS
     Route: 058
     Dates: start: 20060223
  2. METHOTREXATE [Concomitant]
     Route: 065
     Dates: start: 20050208
  3. PREDNISONE [Concomitant]
     Dates: start: 19960201
  4. PREMARIN [Concomitant]
     Dates: start: 19951101

REACTIONS (1)
  - UPPER RESPIRATORY TRACT INFECTION [None]
